FAERS Safety Report 4500258-4 (Version None)
Quarter: 2004Q3

REPORT INFORMATION
  Report Type: 
  Country: None (occurrence: None)
  Receive Date: 20040927
  Receipt Date: 20040719
  Transmission Date: 20050211
  Serious: No
  Sender: FDA-Public Use
  Company Number: USA040772963

PATIENT
  Age: 13 Year
  Sex: Male

DRUGS (2)
  1. STRATTERA [Suspect]
     Indication: ATTENTION DEFICIT/HYPERACTIVITY DISORDER
     Dosage: 40 MG
     Dates: start: 20030101, end: 20040718
  2. MULTIVITAMINS NOS (MULTIVITAMINS NOS) [Concomitant]

REACTIONS (10)
  - ABNORMAL BEHAVIOUR [None]
  - DRUG EFFECT DECREASED [None]
  - EDUCATIONAL PROBLEM [None]
  - EYE REDNESS [None]
  - INSOMNIA [None]
  - IRRITABILITY [None]
  - SKIN DISCOLOURATION [None]
  - SOMNOLENCE [None]
  - THINKING ABNORMAL [None]
  - WEIGHT INCREASED [None]
